FAERS Safety Report 16679654 (Version 1)
Quarter: 2019Q3

REPORT INFORMATION
  Report Type: Spontaneous
  Country: US (occurrence: US)
  Receive Date: 20190807
  Receipt Date: 20190807
  Transmission Date: 20191004
  Serious: Yes (Hospitalization)
  Sender: FDA-Public Use
  Company Number: US-VERTEX PHARMACEUTICALS-2019-007297

PATIENT
  Age: 56 Year
  Sex: Male

DRUGS (25)
  1. CAYSTON [Concomitant]
     Active Substance: AZTREONAM
  2. MAG OXIDE [Concomitant]
     Active Substance: MAGNESIUM OXIDE
  3. BACTRIM [Concomitant]
     Active Substance: SULFAMETHOXAZOLE\TRIMETHOPRIM
  4. MELATONIN [Concomitant]
     Active Substance: MELATONIN
  5. NOXAFIL [Concomitant]
     Active Substance: POSACONAZOLE
  6. KALYDECO [Suspect]
     Active Substance: IVACAFTOR
     Indication: CYSTIC FIBROSIS
     Dosage: 150 MG, BID
     Route: 048
     Dates: start: 20180522
  7. CLONIDINE. [Concomitant]
     Active Substance: CLONIDINE
  8. COLISTIMETHATE [Concomitant]
     Active Substance: COLISTIMETHATE SODIUM
  9. VALCYTE [Concomitant]
     Active Substance: VALGANCICLOVIR HYDROCHLORIDE
  10. CARVEDILOL. [Concomitant]
     Active Substance: CARVEDILOL
  11. NOVOLOG [Concomitant]
     Active Substance: INSULIN ASPART
  12. VITAMIN D [ERGOCALCIFEROL] [Concomitant]
     Active Substance: ERGOCALCIFEROL
  13. BIOTIN [Concomitant]
     Active Substance: BIOTIN
  14. CALCIUM [Concomitant]
     Active Substance: CALCIUM
  15. LANTUS [Concomitant]
     Active Substance: INSULIN GLARGINE
  16. LOVAZA [Concomitant]
     Active Substance: OMEGA-3-ACID ETHYL ESTERS
  17. VITAMIN B12 [COBAMAMIDE] [Concomitant]
  18. MYCOPHENOLATE [Concomitant]
     Active Substance: MYCOPHENOLIC ACID
  19. OMEPRAZOLE. [Concomitant]
     Active Substance: OMEPRAZOLE
  20. ZENPEP [Concomitant]
     Active Substance: PANCRELIPASE AMYLASE\PANCRELIPASE LIPASE\PANCRELIPASE PROTEASE
  21. AZITHROMYCIN ANHYDROUS. [Concomitant]
     Active Substance: AZITHROMYCIN ANHYDROUS
  22. CRESTOR [Concomitant]
     Active Substance: ROSUVASTATIN CALCIUM
  23. DOCUSATE [Concomitant]
     Active Substance: DOCUSATE
  24. PREDNISONE. [Concomitant]
     Active Substance: PREDNISONE
  25. PROAIR [FLUTICASONE PROPIONATE] [Concomitant]
     Active Substance: FLUTICASONE PROPIONATE

REACTIONS (1)
  - Skin lesion [Unknown]

NARRATIVE: CASE EVENT DATE: 201907
